FAERS Safety Report 21758229 (Version 1)
Quarter: 2022Q4

REPORT INFORMATION
  Report Type: Spontaneous
  Country: US (occurrence: US)
  Receive Date: 20221221
  Receipt Date: 20221221
  Transmission Date: 20230112
  Serious: No
  Sender: FDA-Public Use
  Company Number: US-CELLTRION INC.-2022US003031

PATIENT

DRUGS (2)
  1. TRUXIMA [Suspect]
     Active Substance: RITUXIMAB-ABBS
     Indication: Multifocal motor neuropathy
     Dosage: 1 G DAY 1 AND DAY 15 AND THEN EVERY 6 MONTHS THEREAFTER
     Dates: start: 20220208
  2. TRUXIMA [Suspect]
     Active Substance: RITUXIMAB-ABBS
     Dosage: 1 G DAY 1 AND DAY 15 AND THEN EVERY 6 MONTHS THEREAFTER
     Dates: start: 20220222

REACTIONS (4)
  - Pharyngeal paraesthesia [Unknown]
  - Urticaria [Unknown]
  - Pruritus [Unknown]
  - Off label use [Unknown]
